FAERS Safety Report 5009928-5 (Version None)
Quarter: 2006Q2

REPORT INFORMATION
  Report Type: 
  Country: None (occurrence: None)
  Receive Date: 20060522
  Receipt Date: 20051205
  Transmission Date: 20061013
  Serious: Yes (Death, Hospitalization)
  Sender: FDA-Public Use
  Company Number: 2006-142719-NL

PATIENT
  Age: 76 Year
  Sex: Male

DRUGS (5)
  1. VECURONIUM BROMIDE [Suspect]
     Indication: LIFE SUPPORT
     Route: 041
     Dates: start: 20051123, end: 20051128
  2. MIDAZOLAM HCL [Concomitant]
  3. METHYLPREDNISOLONE SODIUM SUCCINATE [Concomitant]
  4. PREDNISOLONE [Concomitant]
  5. PAZUFLOXACIN [Concomitant]

REACTIONS (26)
  - ASCITES [None]
  - BLOOD PRESSURE DECREASED [None]
  - BRONCHITIS [None]
  - CARDIAC FAILURE [None]
  - CARDIOMEGALY [None]
  - CHOLESTASIS [None]
  - CONDITION AGGRAVATED [None]
  - DRUG INEFFECTIVE [None]
  - GENERAL PHYSICAL HEALTH DETERIORATION [None]
  - GENERALISED OEDEMA [None]
  - HEPATIC CIRRHOSIS [None]
  - HEPATIC FAILURE [None]
  - HEPATOCELLULAR DAMAGE [None]
  - HYPOALBUMINAEMIA [None]
  - HYPOPNOEA [None]
  - MUSCLE ATROPHY [None]
  - MUSCLE NECROSIS [None]
  - MYOCARDIAL CALCIFICATION [None]
  - NEUROLEPTIC MALIGNANT SYNDROME [None]
  - NEUROMUSCULAR BLOCKADE [None]
  - OEDEMA [None]
  - PULMONARY FIBROSIS [None]
  - QUADRIPLEGIA [None]
  - RENAL IMPAIRMENT [None]
  - RESPIRATORY FAILURE [None]
  - SPLEEN DISORDER [None]
